FAERS Safety Report 8451593 (Version 2)
Quarter: 2014Q4

REPORT INFORMATION
  Report Type: Spontaneous
  Country: US (occurrence: US)
  Receive Date: 20120309
  Receipt Date: 20141219
  Transmission Date: 20150529
  Serious: Yes (Other)
  Sender: FDA-Public Use
  Company Number: US-ROCHE-1045127

PATIENT
  Age: 44 Year
  Sex: Female

DRUGS (1)
  1. BONIVA [Suspect]
     Active Substance: IBANDRONATE SODIUM
     Indication: PRODUCT USED FOR UNKNOWN INDICATION
     Route: 065
     Dates: end: 201002

REACTIONS (3)
  - Bursitis [Unknown]
  - Femur fracture [Unknown]
  - Depression [Unknown]

NARRATIVE: CASE EVENT DATE: 20100604
